FAERS Safety Report 5342016-7 (Version None)
Quarter: 2007Q2

REPORT INFORMATION
  Report Type: 
  Country: None (occurrence: None)
  Receive Date: 20070530
  Receipt Date: 20070530
  Transmission Date: 20071010
  Serious: No
  Sender: FDA-Public Use
  Company Number: None

PATIENT
  Age: 72 Year
  Sex: Male
  Weight: 89.3586 kg

DRUGS (1)
  1. COREG [Suspect]
     Indication: CARDIAC DISORDER
     Dosage: 3.125 MG 2 X A DAY PO
     Route: 048
     Dates: start: 20061215, end: 20061222

REACTIONS (3)
  - NEUROPATHY PERIPHERAL [None]
  - OEDEMA PERIPHERAL [None]
  - PAIN IN EXTREMITY [None]
